FAERS Safety Report 6811391-6 (Version None)
Quarter: 2010Q2

REPORT INFORMATION
  Report Type: 
  Country: None (occurrence: None)
  Receive Date: 20100630
  Receipt Date: 20100329
  Transmission Date: 20101027
  Serious: No
  Sender: FDA-Public Use
  Company Number: US-AMGEN-KDL403341

PATIENT
  Sex: Male
  Weight: 77.6 kg

DRUGS (13)
  1. PROCRIT [Suspect]
     Indication: DRUG USE FOR UNKNOWN INDICATION
  2. PROGRAF [Concomitant]
  3. MYFORTIC [Concomitant]
  4. SYNTHROID [Concomitant]
  5. ATENOLOL [Concomitant]
  6. LIPITOR [Concomitant]
  7. NIACIN [Concomitant]
  8. VITAMIN C [Concomitant]
  9. NIFEDIPINE [Concomitant]
  10. ASPIRIN [Concomitant]
  11. IRON [Concomitant]
  12. PROTONIX [Concomitant]
  13. JANUVIA [Concomitant]

REACTIONS (2)
  - ACTIVITIES OF DAILY LIVING IMPAIRED [None]
  - FATIGUE [None]
